FAERS Safety Report 24561040 (Version 2)
Quarter: 2024Q4

REPORT INFORMATION
  Report Type: Spontaneous
  Country: FR (occurrence: FR)
  Receive Date: 20241029
  Receipt Date: 20241104
  Transmission Date: 20250114
  Serious: Yes (Life-Threatening)
  Sender: TAKEDA
  Company Number: None

PATIENT
  Age: 78 Year
  Sex: Male
  Weight: 58 kg

DRUGS (1)
  1. GAMMAGARD [Suspect]
     Active Substance: HUMAN IMMUNOGLOBULIN G
     Indication: Hypogammaglobulinaemia
     Dosage: 10 GRAM
     Route: 042
     Dates: start: 20241012, end: 20241012

REACTIONS (2)
  - Hypersensitivity [Recovered/Resolved]
  - Bronchospasm [Recovered/Resolved]

NARRATIVE: CASE EVENT DATE: 20241012
